FAERS Safety Report 4918617-4 (Version None)
Quarter: 2006Q1

REPORT INFORMATION
  Report Type: 
  Country: None (occurrence: None)
  Receive Date: 20060221
  Receipt Date: 20060221
  Transmission Date: 20060701
  Serious: No
  Sender: FDA-Public Use
  Company Number: None

PATIENT
  Age: 43 Year
  Sex: Male

DRUGS (1)
  1. AMITRIPTYLINE HCL 100MG TAB [Suspect]
     Indication: DEPRESSION
     Dosage: 100MG QD PO
     Route: 048
     Dates: start: 20060113, end: 20060215

REACTIONS (1)
  - PHOTOSENSITIVITY REACTION [None]
